FAERS Safety Report 4483756-1 (Version None)
Quarter: 2004Q4

REPORT INFORMATION
  Report Type: 
  Country: None (occurrence: None)
  Receive Date: 20041022
  Receipt Date: 20041022
  Transmission Date: 20050328
  Serious: Yes (Other)
  Sender: FDA-Public Use
  Company Number: None

PATIENT
  Age: 60 Year
  Sex: Male
  Weight: 77.1115 kg

DRUGS (1)
  1. CELEBREX [Suspect]
     Indication: ARTHRALGIA
     Dates: start: 20030101

REACTIONS (6)
  - CARCINOMA [None]
  - HAEMORRHAGE [None]
  - IMPAIRED HEALING [None]
  - PRURITUS [None]
  - RASH PAPULAR [None]
  - SCRATCH [None]
